FAERS Safety Report 9909158 (Version 1)
Quarter: 2014Q1

REPORT INFORMATION
  Report Type: Spontaneous
  Country: US (occurrence: None)
  Receive Date: 20140214
  Receipt Date: 20140214
  Transmission Date: 20141002
  Serious: No
  Sender: FDA-Public Use
  Company Number: None

PATIENT
  Age: 21 Year
  Sex: Male

DRUGS (6)
  1. CLOZAPINE [Suspect]
     Route: 048
  2. ATENOLOL [Concomitant]
  3. FISH OIL [Concomitant]
  4. METFORMIN [Concomitant]
  5. ACETAMINOPHEN [Concomitant]
  6. PSYLLIUM [Concomitant]

REACTIONS (1)
  - Tachycardia [None]
